FAERS Safety Report 12217087 (Version 2)
Quarter: 2016Q1

REPORT INFORMATION
  Report Type: Spontaneous
  Country: BR (occurrence: BR)
  Receive Date: 20160329
  Receipt Date: 20160329
  Transmission Date: 20160526
  Serious: Yes (Congenital Anomaly, Other)
  Sender: FDA-Public Use
  Company Number: BR-WATSON-2016-06566

PATIENT

DRUGS (5)
  1. DICLOFENAC SODIUM (UNKNOWN) [Suspect]
     Active Substance: DICLOFENAC SODIUM
     Indication: THROMBOPHLEBITIS
     Dosage: 50 MG, TOTAL
     Route: 064
  2. INDOMETACIN (UNKNOWN) [Suspect]
     Active Substance: INDOMETHACIN
     Indication: POLYHYDRAMNIOS
  3. INDOMETACIN (UNKNOWN) [Suspect]
     Active Substance: INDOMETHACIN
     Indication: BACK PAIN
     Dosage: 100 MG, DAILY
     Route: 064
  4. DICLOFENAC SODIUM (UNKNOWN) [Suspect]
     Active Substance: DICLOFENAC SODIUM
     Indication: VENOUS THROMBOSIS
  5. CAFFEINE (UNKNOWN) [Suspect]
     Active Substance: CAFFEINE
     Indication: ANALGESIC THERAPY
     Dosage: 30 MG, DAILY
     Route: 064

REACTIONS (5)
  - Trisomy 21 [None]
  - Dilatation ventricular [Not Recovered/Not Resolved]
  - Ductus arteriosus stenosis foetal [Not Recovered/Not Resolved]
  - Pericardial effusion [Not Recovered/Not Resolved]
  - Foetal exposure during pregnancy [Unknown]
